FAERS Safety Report 12435260 (Version 2)
Quarter: 2018Q2

REPORT INFORMATION
  Report Type: Spontaneous
  Country: US (occurrence: US)
  Receive Date: 20160603
  Receipt Date: 20180625
  Transmission Date: 20180711
  Serious: No
  Sender: FDA-Public Use
  Company Number: US-ROCHE-1416767

PATIENT
  Sex: Male

DRUGS (8)
  1. KLONOPIN [Suspect]
     Active Substance: CLONAZEPAM
     Indication: OBSESSIVE-COMPULSIVE DISORDER
     Route: 048
  2. CLONAZEPAM (TEVA PHARM) [Suspect]
     Active Substance: CLONAZEPAM
     Indication: ANXIETY
     Route: 048
  3. CLONAZEPAM (TEVA PHARM) [Suspect]
     Active Substance: CLONAZEPAM
     Indication: OBSESSIVE-COMPULSIVE DISORDER
  4. KLONOPIN [Suspect]
     Active Substance: CLONAZEPAM
     Indication: PANIC DISORDER
     Route: 048
     Dates: start: 201410
  5. KLONOPIN [Suspect]
     Active Substance: CLONAZEPAM
     Indication: ANXIETY
     Route: 048
  6. KLONOPIN [Suspect]
     Active Substance: CLONAZEPAM
     Route: 048
  7. CLONAZEPAM (TEVA PHARM) [Suspect]
     Active Substance: CLONAZEPAM
     Indication: PANIC DISORDER
     Route: 048
     Dates: start: 20140609
  8. ATIVAN [Concomitant]
     Active Substance: LORAZEPAM
     Indication: ANXIETY DISORDER
     Dosage: 3-4 MG  PRN
     Route: 065

REACTIONS (19)
  - Malaise [Unknown]
  - Abdominal discomfort [Unknown]
  - Nausea [Not Recovered/Not Resolved]
  - Wheezing [Not Recovered/Not Resolved]
  - Anxiety [Unknown]
  - Product quality issue [Unknown]
  - Aphasia [Unknown]
  - Incorrect dosage administered [Unknown]
  - Fatigue [Unknown]
  - Amnesia [Unknown]
  - Cough [Not Recovered/Not Resolved]
  - Pyrexia [Recovered/Resolved]
  - Decreased appetite [Recovering/Resolving]
  - Headache [Not Recovered/Not Resolved]
  - Anaemia [Unknown]
  - Dysgraphia [Unknown]
  - Drug ineffective [Unknown]
  - Memory impairment [Unknown]
  - Drug effect decreased [Unknown]
